FAERS Safety Report 9243186 (Version 1)
Quarter: 2013Q2

REPORT INFORMATION
  Report Type: Spontaneous
  Country: BR (occurrence: BR)
  Receive Date: 20130419
  Receipt Date: 20130419
  Transmission Date: 20140414
  Serious: Yes (Hospitalization)
  Sender: FDA-Public Use
  Company Number: BR-PFIZER INC-2013121834

PATIENT
  Age: 49 Year
  Sex: Female
  Weight: 60 kg

DRUGS (2)
  1. LYRICA [Suspect]
     Indication: FIBROMYALGIA
     Dosage: 75 MG, 2X/DAY
     Route: 048
     Dates: start: 20110917
  2. FRONTAL [Suspect]
     Indication: DEPRESSION
     Dosage: 0.5 MG, DAILY
     Dates: start: 2010

REACTIONS (2)
  - Ligament rupture [Unknown]
  - Off label use [Not Recovered/Not Resolved]
